FAERS Safety Report 6241298-7 (Version None)
Quarter: 2009Q2

REPORT INFORMATION
  Report Type: 
  Country: None (occurrence: None)
  Receive Date: 20090623
  Receipt Date: 20080508
  Transmission Date: 20091009
  Serious: Yes (Other)
  Sender: FDA-Public Use
  Company Number: US-BRISTOL-MYERS SQUIBB COMPANY-14188346

PATIENT
  Age: 72 Year
  Sex: Male

DRUGS (2)
  1. PRINIVIL [Suspect]
     Indication: DIABETES MELLITUS
     Route: 048
     Dates: start: 20041123
  2. POTASSIUM CHLORIDE [Suspect]
     Indication: DIURETIC THERAPY
     Route: 048
     Dates: start: 20070712, end: 20070726

REACTIONS (1)
  - HYPERKALAEMIA [None]
